FAERS Safety Report 10679672 (Version 2)
Quarter: 2014Q4

REPORT INFORMATION
  Report Type: Spontaneous
  Country: NL (occurrence: NL)
  Receive Date: 20141229
  Receipt Date: 20141229
  Transmission Date: 20150529
  Serious: Yes (Life-Threatening, Hospitalization, Other)
  Sender: FDA-Public Use
  Company Number: NL-EMD SERONO-230010M10NLD

PATIENT
  Age: 49 Year
  Sex: Male
  Weight: 94 kg

DRUGS (13)
  1. NITROLINGUAL [Concomitant]
     Active Substance: NITROGLYCERIN
     Indication: PRODUCT USED FOR UNKNOWN INDICATION
     Dates: start: 20080205, end: 20091015
  2. OXAZEPAM. [Concomitant]
     Active Substance: OXAZEPAM
     Indication: UNEVALUABLE EVENT
     Route: 048
     Dates: start: 20081219, end: 20090103
  3. CLOPIDOGREL [Concomitant]
     Active Substance: CLOPIDOGREL BISULFATE
     Indication: MYOCARDIAL INFARCTION
     Route: 048
     Dates: start: 201109
  4. METOPROLOLSUCCINAAT [Concomitant]
     Indication: MYOCARDIAL INFARCTION
     Route: 048
     Dates: start: 201109
  5. PREDNISOLON                        /00016201/ [Concomitant]
     Active Substance: PREDNISOLONE
     Indication: PRODUCT USED FOR UNKNOWN INDICATION
     Dates: start: 20091102, end: 20091107
  6. NAPROXEN. [Concomitant]
     Active Substance: NAPROXEN
     Indication: UNEVALUABLE EVENT
     Dates: start: 2008
  7. ROSUVASTATINE [Concomitant]
     Active Substance: ROSUVASTATIN
     Indication: MYOCARDIAL INFARCTION
     Route: 048
     Dates: start: 201109
  8. PANTOPRAZOLE [Concomitant]
     Active Substance: PANTOPRAZOLE SODIUM
     Indication: MYOCARDIAL INFARCTION
     Route: 048
     Dates: start: 201109
  9. PARACETAMOL [Concomitant]
     Active Substance: ACETAMINOPHEN
     Indication: UNEVALUABLE EVENT
     Route: 048
     Dates: start: 2008
  10. ARTHROTEC [Concomitant]
     Active Substance: DICLOFENAC SODIUM\MISOPROSTOL
     Indication: PRODUCT USED FOR UNKNOWN INDICATION
     Dates: start: 20091001
  11. ACETYLSALICYLZUUR [Concomitant]
     Indication: MYOCARDIAL INFARCTION
     Route: 048
     Dates: start: 201109
  12. ISOSORBIDEMONONITRAAT [Concomitant]
     Indication: MYOCARDIAL INFARCTION
     Route: 048
     Dates: start: 201109
  13. REBIF [Suspect]
     Active Substance: INTERFERON BETA-1A
     Indication: MULTIPLE SCLEROSIS
     Route: 058
     Dates: start: 2008, end: 20131201

REACTIONS (8)
  - Muscle spasms [Unknown]
  - Injection site reaction [Unknown]
  - Myocardial infarction [Recovered/Resolved]
  - Influenza like illness [Unknown]
  - Loss of consciousness [Unknown]
  - Injection site induration [Unknown]
  - Injection site erythema [Unknown]
  - Cardiac disorder [Unknown]

NARRATIVE: CASE EVENT DATE: 2008
